FAERS Safety Report 6401167-6 (Version None)
Quarter: 2009Q4

REPORT INFORMATION
  Report Type: 
  Country: None (occurrence: None)
  Receive Date: 20091015
  Receipt Date: 20091007
  Transmission Date: 20100525
  Serious: Yes (Other)
  Sender: FDA-Public Use
  Company Number: US-JNJFOC-20060906243

PATIENT
  Sex: Female

DRUGS (4)
  1. RISPERDAL [Suspect]
     Indication: BIPOLAR DISORDER
     Route: 065
  2. ZOLOFT [Suspect]
     Indication: AFFECTIVE DISORDER
     Route: 065
  3. GABAPENTIN [Suspect]
     Indication: AFFECTIVE DISORDER
     Route: 065
  4. METFORMIN HYDROCHLORIDE [Suspect]
     Indication: DIABETES MELLITUS
     Route: 065

REACTIONS (5)
  - ABDOMINAL DISCOMFORT [None]
  - DIABETES MELLITUS [None]
  - OVERDOSE [None]
  - SUICIDE ATTEMPT [None]
  - TARDIVE DYSKINESIA [None]
